FAERS Safety Report 14921787 (Version 1)
Quarter: 2018Q2

REPORT INFORMATION
  Report Type: Report from Study
  Country: US (occurrence: US)
  Receive Date: 20180522
  Receipt Date: 20180522
  Transmission Date: 20180711
  Serious: Yes (Hospitalization)
  Sender: FDA-Public Use
  Company Number: US-BIOGEN-2018BI00579909

PATIENT
  Sex: Female

DRUGS (1)
  1. AVONEX [Suspect]
     Active Substance: INTERFERON BETA-1A
     Indication: MULTIPLE SCLEROSIS
     Route: 065
     Dates: start: 20130301

REACTIONS (7)
  - Muscle spasms [Unknown]
  - Drug detoxification [Unknown]
  - Gait inability [Unknown]
  - Asthenia [Unknown]
  - Pain [Unknown]
  - Mobility decreased [Unknown]
  - Drug dose omission [Unknown]
